FAERS Safety Report 10630992 (Version 1)
Quarter: 2014Q4

REPORT INFORMATION
  Report Type: Spontaneous
  Country: US (occurrence: US)
  Receive Date: 20141205
  Receipt Date: 20141205
  Transmission Date: 20150529
  Serious: No
  Sender: FDA-Public Use
  Company Number: US-BRISTOL-MYERS SQUIBB COMPANY-21459615

PATIENT
  Age: 64 Year
  Sex: Female
  Weight: 54.87 kg

DRUGS (3)
  1. LANTUS [Concomitant]
     Active Substance: INSULIN GLARGINE
  2. HUMALOG [Concomitant]
     Active Substance: INSULIN LISPRO
  3. ELIQUIS [Suspect]
     Active Substance: APIXABAN
     Dates: start: 20140908

REACTIONS (3)
  - Fatigue [Unknown]
  - Blood glucose decreased [Unknown]
  - Abdominal discomfort [Unknown]
